FAERS Safety Report 7401903-6 (Version None)
Quarter: 2011Q2

REPORT INFORMATION
  Report Type: 
  Country: None (occurrence: None)
  Receive Date: 20110408
  Receipt Date: 20110329
  Transmission Date: 20111010
  Serious: Yes (Hospitalization, Other)
  Sender: FDA-Public Use
  Company Number: DE-JNJFOC-20110302632

PATIENT
  Sex: Female
  Weight: 66 kg

DRUGS (12)
  1. DURAGESIC-100 [Suspect]
     Route: 062
  2. PANTOZOL [Concomitant]
     Route: 065
  3. LISIHEXAL [Concomitant]
     Route: 065
  4. SPIRONOLACTONE [Concomitant]
     Route: 065
  5. COSOPT [Concomitant]
     Route: 065
  6. LUMIGAN [Concomitant]
     Route: 065
  7. TORSEMIDE [Concomitant]
     Route: 065
  8. DURAGESIC-100 [Suspect]
     Indication: BACK PAIN
     Route: 062
  9. INSULIN [Suspect]
     Indication: DIABETES MELLITUS
     Route: 065
  10. FALITHROM [Suspect]
     Indication: PRODUCT USED FOR UNKNOWN INDICATION
     Route: 065
  11. RALOFEKT [Concomitant]
     Route: 065
  12. DIGITOXIN TAB [Concomitant]
     Route: 065

REACTIONS (3)
  - HYPOGLYCAEMIA [None]
  - INTERNATIONAL NORMALISED RATIO INCREASED [None]
  - UNRESPONSIVE TO STIMULI [None]
